FAERS Safety Report 4364588-1 (Version None)
Quarter: 2004Q2

REPORT INFORMATION
  Report Type: 
  Country: None (occurrence: None)
  Receive Date: 20040525
  Receipt Date: 20040422
  Transmission Date: 20050107
  Serious: No
  Sender: FDA-Public Use
  Company Number: WAES 97051972

PATIENT
  Age: 31 Year
  Sex: Female
  Weight: 61.6892 kg

DRUGS (9)
  1. CRIXIVAN [Suspect]
     Indication: HIV INFECTION
     Dosage: 1000 MG/Q8H/PO
     Route: 048
     Dates: start: 19970514, end: 19970519
  2. XANAX [Suspect]
     Indication: ANXIETY
     Dosage: 0.5 MG/PRN/PO
     Route: 048
     Dates: start: 19970301, end: 19970523
  3. XANAX [Suspect]
     Indication: INSOMNIA
     Dosage: 0.5 MG/PRN/PO
     Route: 048
     Dates: start: 19970301, end: 19970523
  4. XANAX [Suspect]
     Indication: ANXIETY
     Dosage: 0.5 MG/PRN/PO
     Route: 048
     Dates: start: 19970101
  5. XANAX [Suspect]
     Indication: INSOMNIA
     Dosage: 0.5 MG/PRN/PO
     Route: 048
     Dates: start: 19970101
  6. CAP DMP-266 [Suspect]
     Indication: HIV INFECTION
     Dosage: 600 MG/HS/PO
     Route: 048
     Dates: start: 19970514, end: 19970519
  7. ADVIL [Concomitant]
  8. ZANTAC [Concomitant]
  9. TRAZODONE HCL [Concomitant]

REACTIONS (26)
  - ABDOMINAL PAIN [None]
  - BALANCE DISORDER [None]
  - BLOOD GLUCOSE INCREASED [None]
  - CONFUSIONAL STATE [None]
  - CONTUSION [None]
  - CONVULSION [None]
  - COUGH [None]
  - DEHYDRATION [None]
  - DIARRHOEA [None]
  - DIZZINESS [None]
  - DRUG INTERACTION [None]
  - EPISTAXIS [None]
  - FAECES DISCOLOURED [None]
  - FALL [None]
  - FATIGUE [None]
  - FOOD POISONING [None]
  - HEADACHE [None]
  - MEAN CELL HAEMOGLOBIN INCREASED [None]
  - MEDICATION ERROR [None]
  - PAIN [None]
  - PAIN IN EXTREMITY [None]
  - PHARYNGOLARYNGEAL PAIN [None]
  - REFUSAL OF TREATMENT BY PATIENT [None]
  - SYNCOPE [None]
  - TREATMENT NONCOMPLIANCE [None]
  - VOMITING [None]
